FAERS Safety Report 15276043 (Version 3)
Quarter: 2019Q1

REPORT INFORMATION
  Report Type: Report from Study
  Country: DE (occurrence: DE)
  Receive Date: 20180814
  Receipt Date: 20190204
  Transmission Date: 20190417
  Serious: Yes (Death, Hospitalization)
  Sender: FDA-Public Use
  Company Number: DE-ACTELION-A-CH2017-159225

PATIENT
  Age: 74 Year
  Sex: Male

DRUGS (9)
  1. UPTRAVI [Suspect]
     Active Substance: SELEXIPAG
     Indication: PULMONARY ARTERIAL HYPERTENSION
     Dosage: 600 ?G, BID
     Route: 048
     Dates: start: 20170828
  2. REMODULIN [Concomitant]
     Active Substance: TREPROSTINIL
     Dosage: UNK
     Route: 048
  3. METAMIZOL [Concomitant]
     Active Substance: METAMIZOLE SODIUM
     Dosage: 4 DF, Q6HRS
  4. OPSUMIT [Suspect]
     Active Substance: MACITENTAN
     Indication: PULMONARY ARTERIAL HYPERTENSION
     Dosage: UNK
     Route: 048
     Dates: start: 201706, end: 201901
  5. TORASEMIDE [Concomitant]
     Active Substance: TORSEMIDE
     Dosage: 5 MG, QAM
  6. UPTRAVI [Suspect]
     Active Substance: SELEXIPAG
     Dosage: 1600 ?G, BID
     Route: 048
     Dates: start: 20171228, end: 201801
  7. PANTOPRAZOLE [Concomitant]
     Active Substance: PANTOPRAZOLE
     Dosage: 40 MG, QAM
  8. TREPROSTINIL. [Concomitant]
     Active Substance: TREPROSTINIL
     Dosage: 100 MCG/H
     Route: 058
     Dates: start: 20180118
  9. REVATIO [Concomitant]
     Active Substance: SILDENAFIL CITRATE
     Indication: PULMONARY ARTERIAL HYPERTENSION
     Dosage: UNK
     Route: 048
     Dates: start: 201606, end: 201901

REACTIONS (15)
  - Pulmonary arterial hypertension [Fatal]
  - Pneumonia [Unknown]
  - Cyanosis [Fatal]
  - Hospitalisation [Unknown]
  - Pneumothorax [Fatal]
  - Respiratory failure [Fatal]
  - Thoracic cavity drainage [Unknown]
  - Chills [Unknown]
  - General physical health deterioration [Fatal]
  - Dyspnoea [Fatal]
  - Disease progression [Fatal]
  - Surgery [Unknown]
  - Diarrhoea [Unknown]
  - Tremor [Unknown]
  - Decreased appetite [Unknown]

NARRATIVE: CASE EVENT DATE: 20170831
